FAERS Safety Report 9477232 (Version 1)
Quarter: 2013Q3

REPORT INFORMATION
  Report Type: Spontaneous
  Country: GB (occurrence: GB)
  Receive Date: 20130826
  Receipt Date: 20130826
  Transmission Date: 20140515
  Serious: Yes (Other)
  Sender: FDA-Public Use
  Company Number: GB-EISAI INC-E2007-01286-SPO-GB

PATIENT
  Age: 56 Year
  Sex: Male

DRUGS (6)
  1. FYCOMPA (PERAMPANEL) [Suspect]
     Indication: PRODUCT USED FOR UNKNOWN INDICATION
     Dosage: UNKNOWN
     Route: 048
     Dates: start: 20130512, end: 2013
  2. FYCOMPA (PERAMPANEL) [Suspect]
     Route: 048
     Dates: start: 2013, end: 201308
  3. FYCOMPA (PERAMPANEL) [Suspect]
     Dosage: TITRATED DOWN, DOSE UNKNOWN
     Route: 048
     Dates: start: 201308, end: 201308
  4. FYCOMPA (PERAMPANEL) [Suspect]
     Dates: start: 201308, end: 20130815
  5. TOPIRAMATE [Concomitant]
  6. PREGABALIN [Concomitant]

REACTIONS (2)
  - Psychotic disorder [Unknown]
  - Insomnia [Unknown]
